FAERS Safety Report 4942672-9 (Version None)
Quarter: 2006Q1

REPORT INFORMATION
  Report Type: 
  Country: None (occurrence: None)
  Receive Date: 20060309
  Receipt Date: 20060303
  Transmission Date: 20060701
  Serious: Yes (Death, Life-Threatening, Hospitalization)
  Sender: FDA-Public Use
  Company Number: 2006EN000075

PATIENT
  Sex: Female

DRUGS (5)
  1. ABELCET [Suspect]
     Indication: ASPERGILLOSIS
  2. CASPOFUNGIN 9CASPOFUNGIN) [Suspect]
     Indication: ASPERGILLOSIS
     Dosage: 50 MG
  3. AMPHOTERICIN B [Concomitant]
     Indication: ASPERGILLOSIS
  4. ITRACONAZOLE [Suspect]
  5. CYCLOSPORINE [Concomitant]

REACTIONS (1)
  - FUNGAL INFECTION [None]
